FAERS Safety Report 13220763 (Version 1)
Quarter: 2017Q1

REPORT INFORMATION
  Report Type: Spontaneous
  Country: US (occurrence: US)
  Receive Date: 20170211
  Receipt Date: 20170211
  Transmission Date: 20170428
  Serious: No
  Sender: FDA-Public Use
  Company Number: US-BIOGEN-2017BI00357166

PATIENT
  Sex: Female

DRUGS (1)
  1. AVONEX [Suspect]
     Active Substance: INTERFERON BETA-1A
     Indication: MULTIPLE SCLEROSIS
     Route: 030
     Dates: start: 19960610, end: 19980610

REACTIONS (6)
  - Hypertension [Unknown]
  - Headache [Unknown]
  - Gait disturbance [Unknown]
  - Hyperhidrosis [Unknown]
  - Hemiparesis [Unknown]
  - Dizziness [Unknown]
